FAERS Safety Report 5278019-0 (Version None)
Quarter: 2007Q1

REPORT INFORMATION
  Report Type: 
  Country: None (occurrence: None)
  Receive Date: 20070321
  Receipt Date: 20070306
  Transmission Date: 20070707
  Serious: Yes (Hospitalization)
  Sender: FDA-Public Use
  Company Number: 2007000196

PATIENT
  Sex: Female

DRUGS (1)
  1. TARCEVA [Suspect]
     Indication: NON-SMALL CELL LUNG CANCER METASTATIC
     Dosage: 150 MG (QD), ORAL
     Route: 048
     Dates: start: 20061211

REACTIONS (4)
  - BLOOD URINE PRESENT [None]
  - DIARRHOEA [None]
  - NEPHROLITHIASIS [None]
  - RENAL COLIC [None]
